FAERS Safety Report 6743462-7 (Version None)
Quarter: 2010Q2

REPORT INFORMATION
  Report Type: 
  Country: None (occurrence: None)
  Receive Date: 20100527
  Receipt Date: 20100514
  Transmission Date: 20101027
  Serious: Yes (Other)
  Sender: FDA-Public Use
  Company Number: DE-MYLANLABS-2010S1008577

PATIENT
  Age: 53 Year
  Sex: Male
  Weight: 100 kg

DRUGS (2)
  1. DOXEPIN HYDROCHLORIDE [Suspect]
     Indication: INTENTIONAL OVERDOSE
     Route: 048
     Dates: start: 20100514, end: 20100514
  2. TRAMADOL HCL [Suspect]
     Indication: INTENTIONAL OVERDOSE
     Route: 048
     Dates: start: 20100514, end: 20100514

REACTIONS (4)
  - DYSARTHRIA [None]
  - INTENTIONAL OVERDOSE [None]
  - MUSCLE SPASMS [None]
  - SUICIDE ATTEMPT [None]
